FAERS Safety Report 9744309 (Version 1)
Quarter: 2013Q4

REPORT INFORMATION
  Report Type: Spontaneous
  Country: US (occurrence: US)
  Receive Date: 20131210
  Receipt Date: 20131210
  Transmission Date: 20140711
  Serious: Yes (Hospitalization)
  Sender: FDA-Public Use
  Company Number: US-B.I. PHARMACEUTICALS,INC./RIDGEFIELD-2013-BI-40428BP

PATIENT
  Age: 77 Year
  Sex: Female
  Weight: 56 kg

DRUGS (10)
  1. SPIRIVA [Suspect]
     Indication: CHRONIC OBSTRUCTIVE PULMONARY DISEASE
     Dosage: 18 MCG
     Route: 055
     Dates: start: 2004
  2. ADVAIR [Concomitant]
     Indication: CHRONIC OBSTRUCTIVE PULMONARY DISEASE
     Dosage: STRENGTH: 1 INHALATION; DAILY DOSE: 2 INHALATIONS
     Route: 055
  3. CRESTOR [Concomitant]
     Indication: BLOOD CHOLESTEROL INCREASED
     Dosage: 20 MG
     Route: 048
  4. LISINOPRIL [Concomitant]
     Indication: HYPERTENSION
     Dosage: 40 MG
     Route: 048
  5. HYDROCHLOROTHIAZIDE [Concomitant]
     Indication: HYPERTENSION
     Dosage: 12.5 MG
     Route: 048
  6. ALBUTEROL NEBULIZER [Concomitant]
     Indication: CHRONIC OBSTRUCTIVE PULMONARY DISEASE
     Dosage: STRENGTH: 0.83 %;
     Route: 055
  7. LEVOTHYROXINE [Concomitant]
     Indication: HYPOTHYROIDISM
     Dosage: 50 MCG
     Route: 048
  8. PREDNISONE [Concomitant]
     Indication: MYALGIA
     Dosage: 5 MG
     Route: 048
  9. VITAMIN D WITH CALCIUM [Concomitant]
     Indication: OSTEOPOROSIS
     Dosage: 1 ANZ
     Route: 048
  10. PROLIA [Concomitant]
     Indication: OSTEOPOROSIS
     Dosage: FORMULATION: SUBCUTANEOUS
     Route: 058

REACTIONS (3)
  - Dyspnoea [Recovered/Resolved]
  - Chronic obstructive pulmonary disease [Not Recovered/Not Resolved]
  - Abnormal loss of weight [Not Recovered/Not Resolved]
